FAERS Safety Report 7482742-7 (Version None)
Quarter: 2011Q2

REPORT INFORMATION
  Report Type: 
  Country: None (occurrence: None)
  Receive Date: 20110516
  Receipt Date: 20110505
  Transmission Date: 20111010
  Serious: Yes (Life-Threatening, Hospitalization, Other)
  Sender: FDA-Public Use
  Company Number: CN-TEVA-280497ISR

PATIENT
  Sex: Male
  Weight: 45 kg

DRUGS (16)
  1. GRANULOCYTE COLONY STIMULATING FACTOR [Concomitant]
     Dates: start: 20110320, end: 20110320
  2. GRANULOCYTE COLONY STIMULATING FACTOR [Concomitant]
     Indication: WHITE BLOOD CELL COUNT DECREASED
     Dates: start: 20110328, end: 20110328
  3. CEFUROXIME [Concomitant]
     Indication: INFECTION PROPHYLAXIS
     Route: 042
     Dates: start: 20110427
  4. ANTITHROMBOTIC AGENTS [Concomitant]
     Indication: THROMBOSIS PROPHYLAXIS
  5. LENALIDOMIDE [Suspect]
     Indication: MULTIPLE MYELOMA
     Dosage: 7.5 MILLIGRAM;
     Route: 048
     Dates: start: 20110303, end: 20110428
  6. COZAAR [Concomitant]
     Indication: HYPERTENSION
  7. AMBROXOL [Concomitant]
     Indication: PROPHYLAXIS
     Route: 042
     Dates: start: 20110419, end: 20110421
  8. DEXAMETHASONE [Suspect]
     Dates: start: 20110107
  9. LENALIDOMIDE [Suspect]
     Dosage: 7.5 MILLIGRAM;
     Route: 048
     Dates: start: 20110107
  10. CEFOXITIN [Suspect]
     Indication: INFECTION PROPHYLAXIS
     Route: 042
     Dates: start: 20110328, end: 20110330
  11. LEUCOGEN [Concomitant]
     Indication: WHITE BLOOD CELL COUNT DECREASED
     Route: 048
     Dates: start: 20110321, end: 20110419
  12. CEFUROXIME [Concomitant]
     Indication: INFECTION
     Route: 042
     Dates: start: 20110419, end: 20110421
  13. DEXAMETHASONE [Suspect]
     Indication: MULTIPLE MYELOMA
     Dates: start: 20110406, end: 20110428
  14. DICYNONE [Concomitant]
     Indication: EPISTAXIS
     Route: 045
     Dates: start: 20110328, end: 20110330
  15. CEFPROZIL [Concomitant]
     Indication: INFECTION PROPHYLAXIS
     Dosage: 2 GRAM;
     Route: 048
     Dates: start: 20110401, end: 20110414
  16. OMEPRAZOLE [Concomitant]
     Indication: PROPHYLAXIS
     Route: 042
     Dates: start: 20110419, end: 20110421

REACTIONS (1)
  - RENAL FAILURE [None]
